FAERS Safety Report 9730035 (Version 2)
Quarter: 2014Q1

REPORT INFORMATION
  Report Type: Spontaneous
  Country: CA (occurrence: CA)
  Receive Date: 20131204
  Receipt Date: 20140307
  Transmission Date: 20141002
  Serious: Yes (Hospitalization, Other)
  Sender: FDA-Public Use
  Company Number: CA-GILEAD-2013-0089177

PATIENT
  Age: 64 Year
  Sex: Female

DRUGS (10)
  1. AMBRISENTAN [Suspect]
     Indication: PULMONARY ARTERIAL HYPERTENSION
     Dosage: 10MG PER DAY
     Route: 048
     Dates: start: 20131009
  2. INFLUENZA VIRUS VACCINE POLYVAL. [Suspect]
     Indication: PROPHYLAXIS
     Route: 065
     Dates: start: 20131106, end: 20131106
  3. IRON [Suspect]
     Indication: PRODUCT USED FOR UNKNOWN INDICATION
     Route: 042
  4. WARFARIN [Suspect]
     Dates: end: 201402
  5. ALENDRONATE [Concomitant]
  6. RABEPRAZOLE [Concomitant]
  7. METFORMIN [Concomitant]
  8. PREDNISONE [Concomitant]
  9. URSODIOL [Concomitant]
  10. VERAPAMIL [Concomitant]

REACTIONS (7)
  - Gastric ulcer [Recovered/Resolved]
  - Malaise [Unknown]
  - Blood iron decreased [Unknown]
  - Faeces discoloured [Unknown]
  - Gastric cancer [Not Recovered/Not Resolved]
  - Ulcer haemorrhage [Not Recovered/Not Resolved]
  - Oedema peripheral [Unknown]
